FAERS Safety Report 5352185-0 (Version None)
Quarter: 2007Q2

REPORT INFORMATION
  Report Type: 
  Country: None (occurrence: None)
  Receive Date: 20070611
  Receipt Date: 20070529
  Transmission Date: 20071010
  Serious: Yes (Hospitalization)
  Sender: FDA-Public Use
  Company Number: JP-SANOFI-SYNTHELABO-F01200700594

PATIENT
  Sex: Male
  Weight: 71 kg

DRUGS (4)
  1. CLOPIDOGREL [Suspect]
     Indication: CEREBRAL INFARCTION
     Dosage: 50MG/75 MG : BLIND
     Route: 048
     Dates: start: 20061219, end: 20070505
  2. NOVORAPID [Concomitant]
     Indication: DIABETES MELLITUS
     Dosage: 30 UNITS
     Route: 058
     Dates: start: 20061219, end: 20070505
  3. GASTER D [Concomitant]
     Dosage: 20 MG
     Route: 048
     Dates: start: 20061219, end: 20070505
  4. LANTUS [Concomitant]
     Indication: DIABETES MELLITUS
     Dosage: 10 UNITS
     Route: 058
     Dates: start: 20061219, end: 20070505

REACTIONS (1)
  - PANCREATIC CARCINOMA [None]
